FAERS Safety Report 6278004-6 (Version None)
Quarter: 2009Q3

REPORT INFORMATION
  Report Type: 
  Country: None (occurrence: None)
  Receive Date: 20090722
  Receipt Date: 20090629
  Transmission Date: 20100115
  Serious: Yes (Other)
  Sender: FDA-Public Use
  Company Number: PHHY2009CA26411

PATIENT
  Sex: Female

DRUGS (1)
  1. SANDOSTATIN LAR [Suspect]
     Indication: NEUROENDOCRINE TUMOUR
     Dosage: 20 MG, QMO
     Route: 030
     Dates: start: 20090626

REACTIONS (6)
  - CHILLS [None]
  - DIARRHOEA [None]
  - INFLUENZA LIKE ILLNESS [None]
  - MALAISE [None]
  - MUSCLE SPASMS [None]
  - NAUSEA [None]
